FAERS Safety Report 23549031 (Version 1)
Quarter: 2024Q1

REPORT INFORMATION
  Report Type: Spontaneous
  Country: GB (occurrence: GB)
  Receive Date: 20240221
  Receipt Date: 20240221
  Transmission Date: 20240410
  Serious: Yes (Hospitalization, Other)
  Sender: FDA-Public Use
  Company Number: None

PATIENT
  Sex: Male

DRUGS (1)
  1. SULFASALAZINE [Suspect]
     Active Substance: SULFASALAZINE
     Indication: Psoriatic arthropathy
     Dosage: 1000 MG, 2X/DAY
     Dates: start: 20240101, end: 20240215

REACTIONS (3)
  - Neutropenic sepsis [Recovering/Resolving]
  - Tonsillitis [Recovering/Resolving]
  - Off label use [Unknown]
